FAERS Safety Report 6077180-8 (Version None)
Quarter: 2009Q1

REPORT INFORMATION
  Report Type: 
  Country: None (occurrence: None)
  Receive Date: 20090121
  Receipt Date: 20071212
  Transmission Date: 20090719
  Serious: Yes (Other)
  Sender: FDA-Public Use
  Company Number: HQWYE912530APR07

PATIENT
  Age: 69 Year
  Sex: Female
  Weight: 59.02 kg

DRUGS (6)
  1. PREMPRO [Suspect]
     Indication: HOT FLUSH
     Dosage: 1 TABLET 1X PER 1 DAY, ORAL
     Route: 048
     Dates: end: 20070422
  2. PREMPRO [Suspect]
     Indication: OSTEOPOROSIS
     Dosage: 1 TABLET 1X PER 1 DAY, ORAL
     Route: 048
     Dates: end: 20070422
  3. LIPITOR [Concomitant]
  4. ASCORBIC ACID [Concomitant]
  5. CALCIUM (CALCIUM) [Concomitant]
  6. MULTIVITAMINS AND IRON (MULTIVITAMINS AND IRON) [Concomitant]

REACTIONS (4)
  - DRUG DOSE OMISSION [None]
  - DYSMENORRHOEA [None]
  - ENDOMETRIAL CANCER [None]
  - VAGINAL HAEMORRHAGE [None]
